FAERS Safety Report 11592945 (Version 3)
Quarter: 2016Q2

REPORT INFORMATION
  Report Type: Spontaneous
  Country: US (occurrence: US)
  Receive Date: 20151005
  Receipt Date: 20160613
  Transmission Date: 20160815
  Serious: Yes (Life-Threatening, Hospitalization, Other)
  Sender: FDA-Public Use
  Company Number: US-BAYER-2015-433269

PATIENT
  Age: 22 Year
  Sex: Female
  Weight: 53.97 kg

DRUGS (43)
  1. DIFLUCAN [Concomitant]
     Active Substance: FLUCONAZOLE
  2. DIFLUCAN [Concomitant]
     Active Substance: FLUCONAZOLE
  3. MERREM [Concomitant]
     Active Substance: MEROPENEM
  4. CALCIUM GLUCONATE. [Concomitant]
     Active Substance: CALCIUM GLUCONATE
  5. KLONOPIN [Concomitant]
     Active Substance: CLONAZEPAM
  6. METOPROLOL TARTRATE. [Concomitant]
     Active Substance: METOPROLOL TARTRATE
  7. MERREM [Concomitant]
     Active Substance: MEROPENEM
  8. PERIDEX [Concomitant]
     Active Substance: CHLORHEXIDINE GLUCONATE
  9. MEROPENEM. [Concomitant]
     Active Substance: MEROPENEM
  10. LOVENOX [Concomitant]
     Active Substance: ENOXAPARIN SODIUM
  11. PROTONIX [Concomitant]
     Active Substance: PANTOPRAZOLE SODIUM
  12. CLONAZEPAM. [Concomitant]
     Active Substance: CLONAZEPAM
  13. FLUTICASONE [Concomitant]
     Active Substance: FLUTICASONE\FLUTICASONE PROPIONATE
  14. DESYREL [Concomitant]
     Active Substance: TRAZODONE HYDROCHLORIDE
  15. METRONIDAZOLE. [Concomitant]
     Active Substance: METRONIDAZOLE
  16. CATHFLO ACTIVASE [Concomitant]
     Active Substance: ALTEPLASE
  17. AZACTAM [Concomitant]
     Active Substance: AZTREONAM
  18. XYLOCAINE [Concomitant]
     Active Substance: LIDOCAINE HYDROCHLORIDE
  19. NARCAN [Concomitant]
     Active Substance: NALOXONE HYDROCHLORIDE
  20. TYLENOL COLD MULTI-SYMPTOM SEVERE [Concomitant]
     Active Substance: ACETAMINOPHEN\DEXTROMETHORPHAN HYDROBROMIDE\GUAIFENESIN\PHENYLEPHRINE HYDROCHLORIDE
  21. FAMOTIDINE. [Concomitant]
     Active Substance: FAMOTIDINE
  22. METHYLPREDNISOLONE. [Concomitant]
     Active Substance: METHYLPREDNISOLONE
  23. COLACE [Concomitant]
     Active Substance: DOCUSATE SODIUM
  24. OMNIPAQUE [Concomitant]
     Active Substance: IOHEXOL
  25. CEFTRIAXONE. [Concomitant]
     Active Substance: CEFTRIAXONE
  26. VANCOCIN [Concomitant]
     Active Substance: VANCOMYCIN HYDROCHLORIDE
  27. DILAUDID [Concomitant]
     Active Substance: HYDROMORPHONE HYDROCHLORIDE
  28. MIRENA [Suspect]
     Active Substance: LEVONORGESTREL
     Indication: CONTRACEPTION
     Dosage: 20 MCG/24HR, CONT
     Route: 015
     Dates: start: 201405, end: 20150308
  29. PERIDEX [Concomitant]
     Active Substance: CHLORHEXIDINE GLUCONATE
  30. DIPRIVAN [Concomitant]
     Active Substance: PROPOFOL
  31. TRAZODONE [Concomitant]
     Active Substance: TRAZODONE HYDROCHLORIDE
  32. CIPROFLOXACIN. [Concomitant]
     Active Substance: CIPROFLOXACIN
  33. ACETAMINOPHEN. [Concomitant]
     Active Substance: ACETAMINOPHEN
  34. FUROSEMIDE. [Concomitant]
     Active Substance: FUROSEMIDE
  35. LOPRESSOR [Concomitant]
     Active Substance: METOPROLOL TARTRATE
  36. DOCUSATE SODIUM. [Concomitant]
     Active Substance: DOCUSATE SODIUM
  37. HYDROMORPHONE [Concomitant]
     Active Substance: HYDROMORPHONE
  38. FENTANYL. [Concomitant]
     Active Substance: FENTANYL
  39. LASIX [Concomitant]
     Active Substance: FUROSEMIDE
  40. SENOKOT [Concomitant]
     Active Substance: SENNOSIDES
  41. ACTIVASE [Concomitant]
     Active Substance: ALTEPLASE
  42. OXYCODONE [Concomitant]
     Active Substance: OXYCODONE
  43. SENNOSIDE [Concomitant]
     Active Substance: SENNOSIDES

REACTIONS (20)
  - Pyrexia [None]
  - Abdominal injury [Not Recovered/Not Resolved]
  - Septic shock [None]
  - Anxiety [None]
  - Medical device pain [Not Recovered/Not Resolved]
  - Pelvic inflammatory disease [None]
  - Device issue [Not Recovered/Not Resolved]
  - Emotional distress [None]
  - Respiratory failure [None]
  - Injury [Not Recovered/Not Resolved]
  - Medical device discomfort [Not Recovered/Not Resolved]
  - Pelvic pain [Not Recovered/Not Resolved]
  - General physical health deterioration [Not Recovered/Not Resolved]
  - Uterine perforation [Not Recovered/Not Resolved]
  - Scar [None]
  - Sepsis [None]
  - Infection [None]
  - Chills [None]
  - Anhedonia [None]
  - Pleural effusion [None]

NARRATIVE: CASE EVENT DATE: 201503
